FAERS Safety Report 4519880-4 (Version None)
Quarter: 2004Q4

REPORT INFORMATION
  Report Type: 
  Country: None (occurrence: None)
  Receive Date: 20041201
  Receipt Date: 20041201
  Transmission Date: 20050328
  Serious: No
  Sender: FDA-Public Use
  Company Number: None

PATIENT
  Age: 24 Year
  Sex: Female
  Weight: 61.2356 kg

DRUGS (1)
  1. ARTICAINE [Suspect]
     Indication: TOOTH EXTRACTION
     Dosage: ONCE DENTAL
     Route: 004

REACTIONS (2)
  - ANAESTHETIC COMPLICATION [None]
  - HYPOAESTHESIA ORAL [None]
